FAERS Safety Report 7576319-2 (Version None)
Quarter: 2011Q2

REPORT INFORMATION
  Report Type: 
  Country: None (occurrence: None)
  Receive Date: 20110628
  Receipt Date: 20110615
  Transmission Date: 20111010
  Serious: Yes (Hospitalization, Other)
  Sender: FDA-Public Use
  Company Number: CH-ELI_LILLY_AND_COMPANY-CH201106004336

PATIENT
  Age: 81 Year
  Sex: Female

DRUGS (13)
  1. CLOPIDOGREL [Concomitant]
     Dosage: 75 MG, QD
     Route: 048
  2. PASPERTIN [Concomitant]
     Indication: NAUSEA
     Dosage: 20 DF, TID
     Route: 048
     Dates: start: 20110610
  3. LIVIAL [Concomitant]
     Dosage: 2.5 MG, QD
     Route: 048
  4. COMILORID [Concomitant]
     Dosage: 50 MG, QD
     Route: 048
  5. SIMVASTATIN [Concomitant]
     Dosage: 0.5 DF, QD
     Route: 048
  6. AMLODIPINE BESYLATE [Concomitant]
     Indication: HYPERTENSION
     Dosage: 10 MG, QD
     Route: 048
  7. METO ZEROK [Concomitant]
     Dosage: 50 MG, QD
     Route: 048
  8. TARGIN [Concomitant]
     Indication: PAIN
     Dosage: UNK, QD
  9. NOVALGIN                           /06276704/ [Concomitant]
     Indication: PAIN
     Dosage: 30 DF, EVERY 8 HRS
     Route: 048
     Dates: start: 20110612
  10. ACETAMINOPHEN [Concomitant]
     Indication: PAIN
     Dosage: 1 G, EVERY 8 HRS
     Route: 048
  11. FORTEO [Suspect]
     Indication: OSTEOPOROSIS
     Dosage: 20 UG, QD
     Route: 058
  12. VITAMIN D [Concomitant]
     Indication: OSTEOPOROSIS
     Dosage: 40 DF, QD
     Route: 048
  13. CALCIMAGON-D3 [Concomitant]
     Dosage: 1 DF, QD

REACTIONS (2)
  - PELVIC FRACTURE [None]
  - INCORRECT ROUTE OF DRUG ADMINISTRATION [None]
